FAERS Safety Report 25934961 (Version 1)
Quarter: 2025Q4

REPORT INFORMATION
  Report Type: Spontaneous
  Country: RU (occurrence: RU)
  Receive Date: 20251017
  Receipt Date: 20251017
  Transmission Date: 20260118
  Serious: Yes (Other)
  Sender: IPSEN BIOPHARMACEUTICALS, INC.
  Company Number: RU-IPSEN Group, Research and Development-2025-24713

PATIENT
  Age: 66 Year
  Sex: Male

DRUGS (4)
  1. LANREOTIDE ACETATE [Suspect]
     Active Substance: LANREOTIDE ACETATE
     Indication: Carcinoid syndrome
     Route: 030
     Dates: start: 201906
  2. LANREOTIDE ACETATE [Suspect]
     Active Substance: LANREOTIDE ACETATE
     Indication: Neuroendocrine tumour
     Dosage: 78 ADMINISTRATIONS OF THE FIRST LINE OF THERAPY WERE PERFORMED ON 30-SEP-2025
     Route: 030
     Dates: start: 20250930
  3. GONADORELIN DIACETATE TETRAHYDRATE [Concomitant]
     Active Substance: GONADORELIN DIACETATE TETRAHYDRATE
     Indication: Carcinoid syndrome
  4. SOMATOSTATIN [Concomitant]
     Active Substance: SOMATOSTATIN
     Indication: Neuroendocrine tumour

REACTIONS (10)
  - Nephrolithiasis [Unknown]
  - Blood chromogranin A increased [Unknown]
  - Hepatic steatosis [Unknown]
  - Pancreatic steatosis [Unknown]
  - Hepatomegaly [Unknown]
  - Cholelithiasis [Unknown]
  - Renal disorder [Unknown]
  - Renal cyst [Unknown]
  - Blood creatinine increased [Unknown]
  - Incorrect route of product administration [Unknown]

NARRATIVE: CASE EVENT DATE: 20190601
